FAERS Safety Report 5265661-6 (Version None)
Quarter: 2007Q1

REPORT INFORMATION
  Report Type: 
  Country: None (occurrence: None)
  Receive Date: 20061213
  Receipt Date: 20060414
  Transmission Date: 20070707
  Serious: Yes (Other)
  Sender: FDA-Public Use
  Company Number: 2005UW04667

PATIENT
  Age: 65 Year
  Sex: Female
  Weight: 77.11 kg

DRUGS (12)
  1. IRESSA [Suspect]
     Indication: NON-SMALL CELL LUNG CANCER
     Dates: start: 20050323
  2. NOTRTIPTYLINE [Concomitant]
  3. METHADONE HCL [Concomitant]
  4. SENOKOT [Concomitant]
  5. CENTRUM SILVER [Concomitant]
  6. ESTER C [Concomitant]
  7. LASIX [Concomitant]
  8. POTASSIUM ACETATE [Concomitant]
  9. OXYGEN [Concomitant]
  10. VITAMIN E [Concomitant]
  11. VITAMIN B COMPLEX CAP [Concomitant]
  12. CALCIUM WITH VITAMIN D [Concomitant]

REACTIONS (6)
  - DIARRHOEA [None]
  - DRY MOUTH [None]
  - MADAROSIS [None]
  - PHARYNGITIS [None]
  - THIRST [None]
  - THROAT IRRITATION [None]
